FAERS Safety Report 19247122 (Version 2)
Quarter: 2021Q2

REPORT INFORMATION
  Report Type: Report from Study
  Country: BD (occurrence: BD)
  Receive Date: 20210512
  Receipt Date: 20210519
  Transmission Date: 20210717
  Serious: Yes (Death)
  Sender: FDA-Public Use
  Company Number: NVSC2021BD105965

PATIENT
  Age: 28 Year
  Sex: Male
  Weight: 65 kg

DRUGS (1)
  1. SANDIMMUN NEORAL [Suspect]
     Active Substance: CYCLOSPORINE
     Indication: NEPHROTIC SYNDROME
     Dosage: 50S
     Route: 048
     Dates: start: 2018

REACTIONS (1)
  - Renal failure [Fatal]

NARRATIVE: CASE EVENT DATE: 2019
